FAERS Safety Report 17391969 (Version 2)
Quarter: 2020Q1

REPORT INFORMATION
  Report Type: Other
  Country: CA (occurrence: CA)
  Receive Date: 20200207
  Receipt Date: 20200227
  Transmission Date: 20200409
  Serious: Yes (Death, Hospitalization, Other)
  Sender: FDA-Public Use
  Company Number: CA-APOTEX-2020AP007134

PATIENT
  Age: 66 Year
  Sex: Male

DRUGS (22)
  1. SANDOSTATIN [Suspect]
     Active Substance: OCTREOTIDE ACETATE
     Indication: NEUROENDOCRINE TUMOUR
     Dosage: TOTAL
     Route: 058
  2. CANNABIS SATIVA [Concomitant]
     Active Substance: CANNABIS SATIVA FLOWERING TOP
     Indication: PRODUCT USED FOR UNKNOWN INDICATION
     Dosage: UNK
     Route: 058
  3. COVERSYL                           /00790702/ [Concomitant]
     Active Substance: PERINDOPRIL
     Dosage: 2 MG, QD
     Route: 065
  4. GRAVOL [Concomitant]
     Active Substance: DIMENHYDRINATE
     Indication: PRODUCT USED FOR UNKNOWN INDICATION
     Dosage: 50 MG, UNK
     Route: 048
  5. COVERSYL                           /00790702/ [Concomitant]
     Active Substance: PERINDOPRIL
     Indication: HYPERTENSION
     Dosage: UNK, QD
     Route: 065
  6. COVERSYL                           /00790702/ [Concomitant]
     Active Substance: PERINDOPRIL
     Dosage: 4 MG, QD
     Route: 048
  7. MIDAZOLAM HYDROCHLORIDE. [Concomitant]
     Active Substance: MIDAZOLAM HYDROCHLORIDE
     Indication: PRODUCT USED FOR UNKNOWN INDICATION
     Dosage: 1 MG, UNK
     Route: 058
  8. SANDOSTATIN [Suspect]
     Active Substance: OCTREOTIDE ACETATE
     Dosage: 30 MG, Q.3W
     Route: 030
  9. ONDANSETRON HYDROCHLORIDE. [Concomitant]
     Active Substance: ONDANSETRON HYDROCHLORIDE
     Indication: PRODUCT USED FOR UNKNOWN INDICATION
     Dosage: 4 MG, UNK
     Route: 048
  10. SANDOSTATIN [Suspect]
     Active Substance: OCTREOTIDE ACETATE
     Dosage: 30 MG, Q.M.T.
     Route: 030
  11. GABAPENTIN. [Concomitant]
     Active Substance: GABAPENTIN
     Indication: PRODUCT USED FOR UNKNOWN INDICATION
     Dosage: 50 MG, BID
     Route: 065
  12. SUCRALFATE. [Concomitant]
     Active Substance: SUCRALFATE
     Indication: PRODUCT USED FOR UNKNOWN INDICATION
     Dosage: 1 G, QID
     Route: 065
  13. AMLODIPINE [Suspect]
     Active Substance: AMLODIPINE BESYLATE
     Indication: HYPERTENSION
     Dosage: 2.5 MG, QD
     Route: 065
  14. SANDOSTATIN [Suspect]
     Active Substance: OCTREOTIDE ACETATE
     Dosage: 40 MG, Q.3W
     Route: 030
  15. PANTOPRAZOLE MAGNESIUM [Concomitant]
     Active Substance: PANTOPRAZOLE MAGNESIUM
     Dosage: 40 MG, BID
     Route: 065
  16. AMLODIPINE [Suspect]
     Active Substance: AMLODIPINE BESYLATE
     Dosage: 5 MG, QD
     Route: 065
  17. SANDOSTATIN [Suspect]
     Active Substance: OCTREOTIDE ACETATE
     Dosage: 60 MG, Q.3W
     Route: 030
  18. PANTOPRAZOLE MAGNESIUM [Concomitant]
     Active Substance: PANTOPRAZOLE MAGNESIUM
     Indication: PRODUCT USED FOR UNKNOWN INDICATION
     Dosage: 40 MG, QD
     Route: 065
  19. PAZOPANIB [Suspect]
     Active Substance: PAZOPANIB
     Indication: PRODUCT USED FOR UNKNOWN INDICATION
     Dosage: 4 DF, QD
     Route: 065
  20. COVERSYL                           /00790702/ [Concomitant]
     Active Substance: PERINDOPRIL
     Dosage: 6 MG, QD
     Route: 065
  21. COVERSYL                           /00790702/ [Concomitant]
     Active Substance: PERINDOPRIL
     Dosage: 8 MG, QD
     Route: 065
  22. DOMPERIDONE MALEATE [Concomitant]
     Active Substance: DOMPERIDONE MALEATE
     Indication: PRODUCT USED FOR UNKNOWN INDICATION
     Dosage: UNK, QID
     Route: 065

REACTIONS (54)
  - Blood pressure systolic increased [Fatal]
  - Erythema [Fatal]
  - Paraesthesia [Fatal]
  - Increased appetite [Fatal]
  - Hot flush [Fatal]
  - Fatigue [Fatal]
  - Benign bone neoplasm [Fatal]
  - Blood pressure diastolic decreased [Fatal]
  - Frequent bowel movements [Fatal]
  - Injection site induration [Fatal]
  - Platelet count abnormal [Fatal]
  - Nausea [Fatal]
  - Body temperature decreased [Fatal]
  - Bone lesion [Fatal]
  - Haematuria [Fatal]
  - Heart rate decreased [Fatal]
  - Loss of consciousness [Fatal]
  - Abdominal discomfort [Fatal]
  - Vomiting [Fatal]
  - Blood chromogranin A increased [Fatal]
  - Decreased appetite [Fatal]
  - Inappropriate schedule of product administration [Fatal]
  - Needle issue [Fatal]
  - Rhinorrhoea [Fatal]
  - Fall [Fatal]
  - Cough [Fatal]
  - Arthralgia [Fatal]
  - Malignant neoplasm progression [Fatal]
  - Nephrolithiasis [Fatal]
  - Asthenia [Fatal]
  - Blood pressure diastolic increased [Fatal]
  - Flatulence [Fatal]
  - Abdominal pain [Fatal]
  - Faeces pale [Fatal]
  - Feeling hot [Fatal]
  - Musculoskeletal chest pain [Fatal]
  - Dizziness [Fatal]
  - Anaemia [Fatal]
  - Blood pressure increased [Fatal]
  - Hair colour changes [Fatal]
  - Ill-defined disorder [Fatal]
  - Flushing [Fatal]
  - Diarrhoea [Fatal]
  - Back pain [Fatal]
  - Headache [Fatal]
  - Malaise [Fatal]
  - Cholelithiasis [Fatal]
  - Injection site swelling [Fatal]
  - Lung neoplasm [Fatal]
  - Productive cough [Fatal]
  - Steatorrhoea [Fatal]
  - Syncope [Fatal]
  - Weight decreased [Fatal]
  - Drug ineffective [Fatal]
